FAERS Safety Report 22354082 (Version 4)
Quarter: 2024Q1

REPORT INFORMATION
  Report Type: Spontaneous
  Country: US (occurrence: US)
  Receive Date: 20230523
  Receipt Date: 20240226
  Transmission Date: 20240409
  Serious: No
  Sender: FDA-Public Use
  Company Number: US-BRISTOL-MYERS SQUIBB COMPANY-2023-072183

PATIENT
  Age: 66 Year
  Sex: Female
  Weight: 123.38 kg

DRUGS (1)
  1. POMALYST [Suspect]
     Active Substance: POMALIDOMIDE
     Indication: Plasma cell myeloma
     Route: 048
     Dates: start: 20220328

REACTIONS (4)
  - Fatigue [Not Recovered/Not Resolved]
  - Off label use [Unknown]
  - Constipation [Unknown]
  - Influenza like illness [Not Recovered/Not Resolved]
